FAERS Safety Report 5410029-2 (Version None)
Quarter: 2007Q3

REPORT INFORMATION
  Report Type: 
  Country: None (occurrence: None)
  Receive Date: 20070809
  Receipt Date: 20070731
  Transmission Date: 20080115
  Serious: Yes (Other)
  Sender: FDA-Public Use
  Company Number: US-PFIZER INC-2007064404

PATIENT
  Sex: Female
  Weight: 85 kg

DRUGS (9)
  1. NEURONTIN [Suspect]
     Indication: NEURALGIA
     Dosage: DAILY DOSE:3600MG
  2. SYNTHROID [Concomitant]
  3. DARVOCET [Concomitant]
  4. NAPROXEN [Concomitant]
  5. ZANTAC 150 [Concomitant]
  6. BUSPAR [Concomitant]
  7. WELLBUTRIN [Concomitant]
  8. DIAZEPAM [Concomitant]
  9. VITAMIN B-12 [Concomitant]

REACTIONS (4)
  - DRUG INEFFECTIVE [None]
  - SUICIDAL IDEATION [None]
  - SURGERY [None]
  - WEIGHT INCREASED [None]
